FAERS Safety Report 25601681 (Version 2)
Quarter: 2025Q3

REPORT INFORMATION
  Report Type: Spontaneous
  Country: GB (occurrence: GB)
  Receive Date: 20250724
  Receipt Date: 20250729
  Transmission Date: 20251020
  Serious: Yes (Disabling, Other)
  Sender: BAUSCH AND LOMB
  Company Number: GB-BAUSCHBL-2025BNL012943

PATIENT
  Sex: Male

DRUGS (1)
  1. VERTEPORFIN [Suspect]
     Active Substance: VERTEPORFIN
     Indication: Prostate cancer
     Route: 065
     Dates: start: 20240116, end: 20240116

REACTIONS (2)
  - Cerebral haemorrhage [Recovered/Resolved with Sequelae]
  - Off label use [Unknown]

NARRATIVE: CASE EVENT DATE: 20250116
